FAERS Safety Report 24374286 (Version 1)
Quarter: 2024Q3

REPORT INFORMATION
  Report Type: Spontaneous
  Country: US (occurrence: None)
  Receive Date: 20240927
  Receipt Date: 20240927
  Transmission Date: 20241016
  Serious: Yes (Other)
  Sender: Public
  Company Number: None

PATIENT
  Age: 44 Year
  Sex: Female
  Weight: 110.25 kg

DRUGS (1)
  1. QULIPTA [Suspect]
     Active Substance: ATOGEPANT
     Indication: Migraine
     Dosage: 1 TABLET DAILY ORAL ?
     Route: 048
     Dates: start: 20240924

REACTIONS (8)
  - Decreased appetite [None]
  - Nausea [None]
  - Malaise [None]
  - Odynophagia [None]
  - Lymphadenopathy [None]
  - Muscle spasms [None]
  - Pain in extremity [None]
  - Gait disturbance [None]

NARRATIVE: CASE EVENT DATE: 20240927
